FAERS Safety Report 7279273-6 (Version None)
Quarter: 2011Q1

REPORT INFORMATION
  Report Type: 
  Country: None (occurrence: None)
  Receive Date: 20110207
  Receipt Date: 20110201
  Transmission Date: 20110831
  Serious: Yes (Hospitalization)
  Sender: FDA-Public Use
  Company Number: AT-PFIZER INC-2011023549

PATIENT
  Age: 23 Year
  Sex: Female
  Weight: 52.9 kg

DRUGS (7)
  1. EFFEXOR XR [Suspect]
     Dosage: 150 MG, 1X/DAY
     Route: 048
     Dates: start: 20101124
  2. TEMESTA [Concomitant]
     Dosage: 1 MG, 1X/DAY
     Route: 048
     Dates: start: 20101208, end: 20101231
  3. LAMICTAL [Concomitant]
     Dosage: 200 MG, 1X/DAY
     Route: 048
  4. CONCOR [Concomitant]
     Dosage: 2.5 MG, 1X/DAY
     Route: 048
     Dates: start: 20101130
  5. MIRTABENE [Suspect]
     Dosage: 15 MG, 1X/DAY
     Route: 048
     Dates: start: 20101206, end: 20101208
  6. SEROQUEL [Suspect]
     Dosage: 300 MG, 1X/DAY
     Route: 048
     Dates: start: 20101123
  7. TEMESTA [Concomitant]
     Dosage: 2 MG, 1X/DAY
     Route: 048
     Dates: start: 20101128, end: 20101207

REACTIONS (2)
  - SLEEP DISORDER [None]
  - RESTLESS LEGS SYNDROME [None]
